FAERS Safety Report 10383797 (Version 1)
Quarter: 2014Q3

REPORT INFORMATION
  Report Type: Spontaneous
  Country: US (occurrence: US)
  Receive Date: 20140814
  Receipt Date: 20140814
  Transmission Date: 20150326
  Serious: Yes (Other)
  Sender: FDA-Public Use
  Company Number: US-JNJFOC-20140811152

PATIENT
  Age: 29 Year
  Sex: Female

DRUGS (2)
  1. IBUPROFEN. [Suspect]
     Active Substance: IBUPROFEN
     Indication: OROPHARYNGEAL PAIN
     Dosage: 2 TO 3 DAYS AGO
     Route: 065
  2. PENICILLIN V [Suspect]
     Active Substance: PENICILLIN V
     Indication: PHARYNGITIS
     Dosage: FIRST DOSE TAKEN IN THE AFTERNOON AND SECOND DOSE TAKEN BETWEEN 6 TO 8 PM
     Route: 065

REACTIONS (5)
  - Swelling face [Recovering/Resolving]
  - Anaphylactic reaction [Recovering/Resolving]
  - Lip swelling [Recovering/Resolving]
  - Dyspnoea [Recovering/Resolving]
  - Eye swelling [Recovering/Resolving]
